FAERS Safety Report 5099576-3 (Version None)
Quarter: 2006Q3

REPORT INFORMATION
  Report Type: 
  Country: None (occurrence: None)
  Receive Date: 20060906
  Receipt Date: 20060821
  Transmission Date: 20061208
  Serious: Yes (Hospitalization)
  Sender: FDA-Public Use
  Company Number: ACO_0256_2006

PATIENT
  Sex: Male

DRUGS (8)
  1. ZANAFLEX [Suspect]
     Dosage: DF
     Dates: start: 20060723, end: 20060805
  2. PRIALT [Suspect]
     Indication: POST LAMINECTOMY SYNDROME
     Dosage: 16 MCG QDAY
     Dates: start: 20060607, end: 20060707
  3. PRIALT [Suspect]
     Indication: POST LAMINECTOMY SYNDROME
     Dosage: 12 MCG QDAY
     Dates: start: 20060707, end: 20060721
  4. PRIALT [Suspect]
     Indication: POST LAMINECTOMY SYNDROME
     Dosage: 14 MCG QDAY
     Dates: start: 20060721, end: 20060805
  5. PRIALT [Suspect]
     Indication: POST LAMINECTOMY SYNDROME
     Dosage: 4.8 MCG QDAY
     Dates: start: 20060805
  6. LYRICA [Suspect]
     Dosage: DF
  7. CYMBALTA [Concomitant]
  8. FENTANYL [Concomitant]

REACTIONS (8)
  - ACUTE PSYCHOSIS [None]
  - BURNING SENSATION [None]
  - CATHETER RELATED COMPLICATION [None]
  - CONFUSIONAL STATE [None]
  - DIZZINESS [None]
  - DRUG INTERACTION [None]
  - HALLUCINATION, AUDITORY [None]
  - THINKING ABNORMAL [None]
